FAERS Safety Report 10548477 (Version 1)
Quarter: 2014Q4

REPORT INFORMATION
  Report Type: Spontaneous
  Country: ES (occurrence: ES)
  Receive Date: 20141028
  Receipt Date: 20141028
  Transmission Date: 20150529
  Serious: Yes (Life-Threatening, Hospitalization)
  Sender: FDA-Public Use
  Company Number: ES-MALLINCKRODT-T201403788

PATIENT
  Age: 64 Year
  Sex: Male
  Weight: 80 kg

DRUGS (9)
  1. ADIRO [Concomitant]
     Active Substance: ASPIRIN
     Dosage: 1 TABLET, QD
  2. PANTOPRAZOLE [Concomitant]
     Active Substance: PANTOPRAZOLE SODIUM
     Dosage: 1 TABLET, QD
  3. ATORVASTATINA [Concomitant]
     Active Substance: ATORVASTATIN
     Dosage: 1 TABLET, QD
  4. ALDACTONE [Concomitant]
     Active Substance: SPIRONOLACTONE
     Dosage: 1 TABLET, QD
  5. CLEXANE [Concomitant]
     Active Substance: ENOXAPARIN SODIUM
     Dosage: 20 MG, QD
  6. OPTIRAY 320 [Suspect]
     Active Substance: IOVERSOL
     Indication: ARTERIOGRAM CORONARY
     Dosage: 180 ML (8 ML PULSES AT 4 ML/SEC), SINGLE
     Route: 013
     Dates: start: 20141007, end: 20141007
  7. CLOPIDOGREL [Concomitant]
     Active Substance: CLOPIDOGREL BISULFATE
     Dosage: 1 TABLET, QD
  8. CELLCEPT [Concomitant]
     Active Substance: MYCOPHENOLATE MOFETIL\MYCOPHENOLATE MOFETIL HYDROCHLORIDE
     Dosage: 1 TABLET/ 12 HOURS
  9. OMNIC TOCAS [Concomitant]
     Dosage: 1 TABLET, QD

REACTIONS (8)
  - Psychomotor hyperactivity [Recovered/Resolved]
  - Disorientation [Recovered/Resolved]
  - Conduct disorder [Recovered/Resolved]
  - Hypoxia [Recovered/Resolved]
  - Aphasia [Recovered/Resolved]
  - Confusional state [Recovered/Resolved]
  - Lacunar infarction [Recovered/Resolved]
  - Hypotension [Recovered/Resolved]

NARRATIVE: CASE EVENT DATE: 20141007
